FAERS Safety Report 7936168-X (Version None)
Quarter: 2011Q4

REPORT INFORMATION
  Report Type: 
  Country: None (occurrence: None)
  Receive Date: 20111123
  Receipt Date: 20111121
  Transmission Date: 20120403
  Serious: Yes (Hospitalization, Other)
  Sender: FDA-Public Use
  Company Number: US-PFIZER INC-2011284887

PATIENT
  Sex: Female
  Weight: 45.351 kg

DRUGS (6)
  1. ZOLOFT [Suspect]
     Indication: ENTERAL NUTRITION
     Dosage: 50 MG, UNK
     Route: 048
     Dates: start: 20111101
  2. ZOLOFT [Suspect]
     Dosage: UNK
     Route: 048
     Dates: start: 20110101, end: 20111101
  3. ZOLOFT [Suspect]
  4. ZOLOFT [Suspect]
  5. ZOLOFT [Suspect]
     Indication: APHASIA
     Dosage: UNK
     Route: 048
  6. ZOLOFT [Suspect]
     Indication: ABASIA
     Dosage: 100 MG, UNK
     Route: 048

REACTIONS (4)
  - DYSPEPSIA [None]
  - DEHYDRATION [None]
  - FAECAL INCONTINENCE [None]
  - DECUBITUS ULCER [None]
